FAERS Safety Report 19013779 (Version 1)
Quarter: 2021Q1

REPORT INFORMATION
  Report Type: Spontaneous
  Country: CN (occurrence: CN)
  Receive Date: 20210315
  Receipt Date: 20210315
  Transmission Date: 20210420
  Serious: Yes (Other)
  Sender: FDA-Public Use
  Company Number: CN-BAXTER-2021BAX004777

PATIENT
  Age: 54 Year
  Sex: Female
  Weight: 51.5 kg

DRUGS (4)
  1. ENDOXAN [Suspect]
     Active Substance: CYCLOPHOSPHAMIDE
     Indication: BREAST CANCER FEMALE
     Dosage: ENDOXAN 840 MG + NS45ML, FIRST CHEMOTHERAPY
     Route: 042
     Dates: start: 20210219, end: 20210219
  2. AIDASHENG [Suspect]
     Active Substance: EPIRUBICIN HYDROCHLORIDE
     Indication: BREAST CANCER FEMALE
     Dosage: AIDASHENG 125 MG + NS100ML, FIRST CHEMOTHERAPY
     Route: 041
     Dates: start: 20210219, end: 20210219
  3. 0.9% SODIUM CHLORIDE INJECTION [Suspect]
     Active Substance: SODIUM CHLORIDE
     Dosage: AIDASHENG 125 MG + NS100ML, FIRST CHEMOTHERAPY
     Route: 041
     Dates: start: 20210219, end: 20210219
  4. 0.9% SODIUM CHLORIDE INJECTION [Suspect]
     Active Substance: SODIUM CHLORIDE
     Indication: MEDICATION DILUTION
     Dosage: ENDOXAN 840 MG + NS45ML, FIRST CHEMOTHERAPY
     Route: 042
     Dates: start: 20210219, end: 20210219

REACTIONS (2)
  - Agranulocytosis [Recovering/Resolving]
  - White blood cell count decreased [Recovering/Resolving]

NARRATIVE: CASE EVENT DATE: 20210226
